FAERS Safety Report 10947975 (Version 1)
Quarter: 2015Q1

REPORT INFORMATION
  Report Type: Spontaneous
  Country: DE (occurrence: DE)
  Receive Date: 20150324
  Receipt Date: 20150324
  Transmission Date: 20150721
  Serious: Yes (Hospitalization)
  Sender: FDA-Public Use
  Company Number: DE-ASTRAZENECA-2015SE24769

PATIENT
  Age: 44 Year
  Sex: Female

DRUGS (4)
  1. METFORMIN HYDROCHLORIDE. [Concomitant]
     Active Substance: METFORMIN HYDROCHLORIDE
  2. LEVOTHYROXINE SODIUM. [Concomitant]
     Active Substance: LEVOTHYROXINE SODIUM
  3. ANTIBIOTICS [Concomitant]
     Active Substance: UNSPECIFIED INGREDIENT
     Route: 042
  4. BYETTA [Suspect]
     Active Substance: EXENATIDE
     Route: 058
     Dates: start: 201101

REACTIONS (3)
  - Pancreatitis [Recovered/Resolved]
  - Hepatic enzyme increased [Unknown]
  - Cholecystitis [Recovered/Resolved]

NARRATIVE: CASE EVENT DATE: 20120928
